FAERS Safety Report 6974406-0 (Version None)
Quarter: 2010Q3

REPORT INFORMATION
  Report Type: 
  Country: None (occurrence: None)
  Receive Date: 20100909
  Receipt Date: 20100909
  Transmission Date: 20110219
  Serious: Yes (Other)
  Sender: FDA-Public Use
  Company Number: US-ABBOTT-10P-163-0667067-00

PATIENT
  Sex: Female
  Weight: 108.05 kg

DRUGS (5)
  1. HUMIRA [Suspect]
     Indication: CROHN'S DISEASE
     Route: 058
     Dates: start: 20071201, end: 20100101
  2. HUMIRA [Suspect]
     Route: 058
     Dates: start: 20100801
  3. FLONASE [Concomitant]
     Indication: SEASONAL ALLERGY
  4. XYZAL [Concomitant]
     Indication: SEASONAL ALLERGY
  5. VERAPAMIL HCL [Concomitant]
     Indication: HYPERTENSION

REACTIONS (8)
  - CHEST X-RAY ABNORMAL [None]
  - COUGH [None]
  - DYSPNOEA [None]
  - INFLUENZA [None]
  - NASOPHARYNGITIS [None]
  - RESPIRATORY DISORDER [None]
  - SARCOIDOSIS [None]
  - WHEEZING [None]
